FAERS Safety Report 8069048-2 (Version None)
Quarter: 2012Q1

REPORT INFORMATION
  Report Type: 
  Country: None (occurrence: None)
  Receive Date: 20120125
  Receipt Date: 20120117
  Transmission Date: 20120608
  Serious: Yes (Other)
  Sender: FDA-Public Use
  Company Number: US-US-EMD SERONO, INC.-231188K07USA

PATIENT
  Sex: Female

DRUGS (8)
  1. CENESTIN [Concomitant]
     Route: 048
  2. DIOVAN [Concomitant]
     Route: 048
  3. REBIF [Suspect]
     Route: 058
  4. ALDACTONE [Concomitant]
     Route: 048
  5. REBIF [Suspect]
     Indication: MULTIPLE SCLEROSIS
     Route: 058
     Dates: start: 20011201, end: 20040101
  6. REBIF [Suspect]
     Route: 058
     Dates: start: 20040101
  7. LIPITOR [Concomitant]
     Dates: end: 20120101
  8. PERSANTINE [Concomitant]
     Route: 048

REACTIONS (6)
  - HEPATIC ENZYME INCREASED [None]
  - DEMYELINATION [None]
  - INTERVERTEBRAL DISC DEGENERATION [None]
  - BONE MARROW DISORDER [None]
  - ARTHRALGIA [None]
  - SPINAL HAEMANGIOMA [None]
